FAERS Safety Report 25836900 (Version 3)
Quarter: 2025Q4

REPORT INFORMATION
  Report Type: Spontaneous
  Country: CA (occurrence: CA)
  Receive Date: 20250923
  Receipt Date: 20251113
  Transmission Date: 20260118
  Serious: Yes (Other)
  Sender: PFIZER
  Company Number: CA-PFIZER INC-202500019787

PATIENT
  Age: 66 Year
  Sex: Female
  Weight: 65 kg

DRUGS (5)
  1. IXIFI [Suspect]
     Active Substance: INFLIXIMAB-QBTX
     Indication: Colitis ulcerative
     Dosage: 400 MG, EVERY 6 WEEKS (RAPID)
     Route: 042
     Dates: start: 20250529, end: 20250529
  2. IXIFI [Suspect]
     Active Substance: INFLIXIMAB-QBTX
     Dosage: 400 MG, EVERY 6 WEEKS
     Route: 042
     Dates: start: 20250711
  3. IXIFI [Suspect]
     Active Substance: INFLIXIMAB-QBTX
     Dosage: 400 MG, EVERY 6 WEEKS
     Route: 042
     Dates: start: 20250821
  4. IXIFI [Suspect]
     Active Substance: INFLIXIMAB-QBTX
     Dosage: 400 MG, 4 WEEKS (EVERY 4 WEEKS)
     Route: 042
     Dates: start: 20250918
  5. IXIFI [Suspect]
     Active Substance: INFLIXIMAB-QBTX
     Dosage: 400 MG, 4 WEEKS ( EVERY 4 WEEK)
     Route: 042
     Dates: start: 20251015

REACTIONS (6)
  - Cataract [Recovered/Resolved]
  - Blood pressure increased [Unknown]
  - Condition aggravated [Recovering/Resolving]
  - Off label use [Unknown]
  - Off label use [Unknown]
  - Intentional product use issue [Unknown]

NARRATIVE: CASE EVENT DATE: 20250529
